FAERS Safety Report 6151891-8 (Version None)
Quarter: 2009Q2

REPORT INFORMATION
  Report Type: 
  Country: None (occurrence: None)
  Receive Date: 20090408
  Receipt Date: 20090330
  Transmission Date: 20091009
  Serious: Yes (Other)
  Sender: FDA-Public Use
  Company Number: 2009JP001870

PATIENT
  Age: 78 Year
  Sex: Male
  Weight: 45.7 kg

DRUGS (5)
  1. SOLIFENACIN BLINDED (CODE NOT BROKEN) TABLET, UNKNOWN [Suspect]
     Indication: HYPERTONIC BLADDER
     Dosage: 2 DF, UID/QD, ORAL
     Route: 048
     Dates: start: 20090129
  2. TAMSULOSIN HCL [Concomitant]
  3. NE SOFT (TOCOPHERYL NICOTINATE) [Concomitant]
  4. AROFUTO (AFLOQUALONE) [Concomitant]
  5. SOFTEAR [Concomitant]

REACTIONS (1)
  - BLOOD POTASSIUM INCREASED [None]
